FAERS Safety Report 6358053-X (Version None)
Quarter: 2009Q3

REPORT INFORMATION
  Report Type: 
  Country: None (occurrence: None)
  Receive Date: 20090916
  Receipt Date: 20090908
  Transmission Date: 20100115
  Serious: Yes (Hospitalization)
  Sender: FDA-Public Use
  Company Number: A0806149A

PATIENT
  Age: 50 Year
  Sex: Male

DRUGS (13)
  1. AVANDIA [Suspect]
     Dosage: 4MG TWICE PER DAY
     Route: 048
     Dates: start: 20060101
  2. AMARYL [Concomitant]
  3. GABAPENTIN [Concomitant]
  4. CYCLOBENZAPRINE [Concomitant]
  5. CYMBALTA [Concomitant]
  6. LIPITOR [Concomitant]
  7. LISINOPRIL [Concomitant]
  8. NEXIUM [Concomitant]
  9. SINGULAIR [Concomitant]
  10. LANTUS [Concomitant]
  11. SPIRIVA [Concomitant]
  12. ALBUTEROL [Concomitant]
  13. ACTOS [Concomitant]
     Dates: end: 20061201

REACTIONS (2)
  - CARDIAC FAILURE CONGESTIVE [None]
  - DEPRESSION [None]
